FAERS Safety Report 13615594 (Version 1)
Quarter: 2017Q2

REPORT INFORMATION
  Report Type: Spontaneous
  Country: US (occurrence: US)
  Receive Date: 20170605
  Receipt Date: 20170605
  Transmission Date: 20170830
  Serious: Yes (Hospitalization)
  Sender: FDA-Public Use
  Company Number: None

PATIENT
  Age: 86 Year
  Sex: Male
  Weight: 59.87 kg

DRUGS (2)
  1. WARFARIN [Suspect]
     Active Substance: WARFARIN
     Indication: ATRIAL FIBRILLATION
     Route: 048
     Dates: start: 19990101, end: 20170311
  2. WARFARIN [Suspect]
     Active Substance: WARFARIN
     Indication: MITRAL VALVE REPAIR
     Route: 048
     Dates: start: 19990101, end: 20170311

REACTIONS (2)
  - Gastric haemorrhage [None]
  - Haematochezia [None]

NARRATIVE: CASE EVENT DATE: 20170311
